FAERS Safety Report 6971410-3 (Version None)
Quarter: 2010Q3

REPORT INFORMATION
  Report Type: 
  Country: None (occurrence: None)
  Receive Date: 20100908
  Receipt Date: 20100728
  Transmission Date: 20110219
  Serious: Yes (Life-Threatening, Other)
  Sender: FDA-Public Use
  Company Number: US-BAXTER-2010BH002434

PATIENT
  Age: 36 Year
  Sex: Male
  Weight: 131 kg

DRUGS (20)
  1. HEPARIN SODIUM INJECTION [Suspect]
     Indication: THROMBOSIS PROPHYLAXIS
     Route: 058
     Dates: start: 20080202, end: 20080215
  2. HEPARIN SODIUM INJECTION [Suspect]
     Indication: INTRAVENOUS CATHETER MANAGEMENT
     Route: 058
     Dates: start: 20080202, end: 20080215
  3. HEPARIN SODIUM INJECTION [Suspect]
     Route: 042
     Dates: start: 20080207, end: 20080215
  4. HEPARIN SODIUM INJECTION [Suspect]
     Route: 042
     Dates: start: 20080207, end: 20080215
  5. NEXIUM [Concomitant]
     Indication: PRODUCT USED FOR UNKNOWN INDICATION
     Route: 065
  6. DECADRON [Concomitant]
     Indication: PRODUCT USED FOR UNKNOWN INDICATION
     Route: 065
  7. VICODIN [Concomitant]
     Indication: PRODUCT USED FOR UNKNOWN INDICATION
     Route: 065
  8. CEFAZOLIN [Concomitant]
     Indication: PRODUCT USED FOR UNKNOWN INDICATION
     Route: 065
  9. DOCUSATE SODIUM [Concomitant]
     Indication: PRODUCT USED FOR UNKNOWN INDICATION
     Route: 065
  10. ESOMEPRAZOLE MAGNESIUM [Concomitant]
     Indication: PRODUCT USED FOR UNKNOWN INDICATION
     Route: 065
  11. ETOMIDATE [Concomitant]
     Indication: PRODUCT USED FOR UNKNOWN INDICATION
     Route: 065
  12. FENTANYL CITRATE [Concomitant]
     Indication: PRODUCT USED FOR UNKNOWN INDICATION
     Route: 065
  13. FOSPHENYTOIN ^PARKE DAVIS^ [Concomitant]
     Indication: PRODUCT USED FOR UNKNOWN INDICATION
     Route: 065
  14. MIDAZOLAM HCL [Concomitant]
     Indication: PRODUCT USED FOR UNKNOWN INDICATION
     Route: 065
  15. PHENYTOIN [Concomitant]
     Indication: PRODUCT USED FOR UNKNOWN INDICATION
     Route: 065
  16. ACETAMINOPHEN [Concomitant]
     Indication: PRODUCT USED FOR UNKNOWN INDICATION
     Route: 065
  17. INSULIN [Concomitant]
     Indication: PRODUCT USED FOR UNKNOWN INDICATION
     Route: 065
  18. METOPROLOL TARTRATE [Concomitant]
     Indication: PRODUCT USED FOR UNKNOWN INDICATION
     Route: 065
  19. HYDRALAZINE [Concomitant]
     Indication: PRODUCT USED FOR UNKNOWN INDICATION
     Route: 065
  20. LORAZEPAM [Concomitant]
     Indication: PRODUCT USED FOR UNKNOWN INDICATION
     Route: 065

REACTIONS (35)
  - ABDOMINAL DISTENSION [None]
  - ABDOMINAL PAIN [None]
  - ACIDOSIS [None]
  - ANAEMIA [None]
  - ANXIETY [None]
  - CARDIAC ARREST [None]
  - CHEST PAIN [None]
  - COLLAPSE OF LUNG [None]
  - CONSTIPATION [None]
  - CONVULSION [None]
  - COUGH [None]
  - DYSPHAGIA [None]
  - DYSPHONIA [None]
  - ENCEPHALOPATHY [None]
  - HAEMORRHAGE [None]
  - HEPARIN-INDUCED THROMBOCYTOPENIA [None]
  - HYDROCEPHALUS [None]
  - HYPERAESTHESIA [None]
  - HYPERGLYCAEMIA [None]
  - HYPERTENSION [None]
  - HYPOKALAEMIA [None]
  - HYPOTENSION [None]
  - INSOMNIA [None]
  - NAUSEA [None]
  - PLEURAL EFFUSION [None]
  - PNEUMONIA ASPIRATION [None]
  - RENAL FAILURE ACUTE [None]
  - RESPIRATORY FAILURE [None]
  - SEPSIS [None]
  - SHOCK [None]
  - SWOLLEN TONGUE [None]
  - SYNCOPE [None]
  - TACHYCARDIA [None]
  - VOMITING [None]
  - WHEEZING [None]
